FAERS Safety Report 23528110 (Version 1)
Quarter: 2024Q1

REPORT INFORMATION
  Report Type: Spontaneous
  Country: US (occurrence: US)
  Receive Date: 20240215
  Receipt Date: 20240215
  Transmission Date: 20240410
  Serious: No
  Sender: FDA-Public Use
  Company Number: US-GLENMARK PHARMACEUTICALS-2023GMK085258

PATIENT

DRUGS (2)
  1. TACROLIMUS [Suspect]
     Active Substance: TACROLIMUS
     Indication: Dermatitis atopic
     Dosage: UNK; FOR COUPLE OF MONTHS
     Route: 061
  2. TACROLIMUS [Suspect]
     Active Substance: TACROLIMUS
     Indication: Eczema

REACTIONS (5)
  - Inappropriate schedule of product administration [Unknown]
  - Poor quality product administered [Unknown]
  - Product use issue [Unknown]
  - Product container seal issue [Unknown]
  - Product leakage [Unknown]
